FAERS Safety Report 12267902 (Version 3)
Quarter: 2017Q1

REPORT INFORMATION
  Report Type: Spontaneous
  Country: US (occurrence: US)
  Receive Date: 20160414
  Receipt Date: 20170322
  Transmission Date: 20170428
  Serious: Yes (Life-Threatening, Other)
  Sender: FDA-Public Use
  Company Number: US-EMERGENT BIOSOLUTIONS-16BA00012SP

PATIENT
  Age: 68 Year
  Sex: Male
  Weight: 70.1 kg

DRUGS (5)
  1. METRONIDAZOLE. [Concomitant]
     Active Substance: METRONIDAZOLE
     Indication: BOTULISM
     Dosage: 500 MG, Q8H
     Route: 042
     Dates: start: 20160308, end: 20160308
  2. PENICILIN G [Concomitant]
     Active Substance: PENICILLIN G
     Indication: BOTULISM
     Dosage: 4000000 UNIT, Q4HR
     Route: 042
     Dates: start: 20160308, end: 20160313
  3. BAT [Suspect]
     Active Substance: EQUINE BOTULINUM NEUROTOXIN A/B/C/D/E/F/G IMMUNE FAB2
     Dosage: 18 ML, SINGLE
     Route: 042
     Dates: start: 20160312
  4. BAT [Suspect]
     Active Substance: EQUINE BOTULINUM NEUROTOXIN A/B/C/D/E/F/G IMMUNE FAB2
     Indication: BOTULISM
     Dosage: 18 ML, SINGLE
     Route: 042
     Dates: start: 20160308
  5. VANCOMYCIN [Concomitant]
     Active Substance: VANCOMYCIN
     Indication: ABSCESS
     Dosage: 1000 MG, UNK
     Route: 042
     Dates: start: 20160307, end: 20160310

REACTIONS (2)
  - Haemodynamic instability [Recovered/Resolved]
  - Acute kidney injury [Recovered/Resolved]

NARRATIVE: CASE EVENT DATE: 20160309
